FAERS Safety Report 10218468 (Version 3)
Quarter: 2014Q2

REPORT INFORMATION
  Report Type: Spontaneous
  Country: RU (occurrence: RU)
  Receive Date: 20140605
  Receipt Date: 20140610
  Transmission Date: 20141212
  Serious: Yes (Disabling)
  Sender: FDA-Public Use
  Company Number: PHHY2014RU062610

PATIENT
  Age: 68 Year
  Sex: Female

DRUGS (4)
  1. EXFORGE [Suspect]
     Indication: HYPERTENSION
     Dosage: 1 DF (160 MG VALS AND 10 MG AMLO), UNK
     Dates: start: 20140407
  2. EXFORGE [Suspect]
     Dosage: 1 DF (80 MG VALS AND 5 MG AMLO), UNK
  3. EUTHYROX [Concomitant]
     Indication: THYROIDECTOMY
     Dosage: UNK UKN, UNK
  4. CORONAL [Concomitant]
     Dosage: UNK UKN, (5 MG IN MORNING AND 2.5 MG IN NIGHT)

REACTIONS (6)
  - Upper limb fracture [Not Recovered/Not Resolved]
  - Asthenia [Recovering/Resolving]
  - Hyperhidrosis [Recovering/Resolving]
  - Hypotension [Recovering/Resolving]
  - Somnolence [Not Recovered/Not Resolved]
  - Diarrhoea [Not Recovered/Not Resolved]
